FAERS Safety Report 6932662-9 (Version None)
Quarter: 2010Q3

REPORT INFORMATION
  Report Type: 
  Country: None (occurrence: None)
  Receive Date: 20100819
  Receipt Date: 20100811
  Transmission Date: 20110219
  Serious: Yes (Hospitalization)
  Sender: FDA-Public Use
  Company Number: US-AMGEN-KDL430801

PATIENT
  Sex: Female

DRUGS (1)
  1. ENBREL [Suspect]
     Indication: RHEUMATOID ARTHRITIS
     Route: 058
     Dates: start: 20100511

REACTIONS (4)
  - FALL [None]
  - FEMUR FRACTURE [None]
  - INCISION SITE ERYTHEMA [None]
  - POST PROCEDURAL DISCHARGE [None]
